FAERS Safety Report 10436335 (Version 1)
Quarter: 2014Q3

REPORT INFORMATION
  Report Type: Spontaneous
  Country: US (occurrence: None)
  Receive Date: 20140904
  Receipt Date: 20140904
  Transmission Date: 20150326
  Serious: Yes (Other)
  Sender: FDA-Public Use
  Company Number: US-H14001-14-00473

PATIENT
  Age: 35 Year
  Sex: Female
  Weight: 78 kg

DRUGS (2)
  1. MEPERIDINE [Suspect]
     Active Substance: MEPERIDINE
     Indication: PAIN
     Route: 042
     Dates: start: 20140822, end: 20140822
  2. ORTHO-EVRA PATCH (EVRA) (UNKNOWN) (ETHINYLESTRADIOL, NORELGESTROMIN) [Concomitant]

REACTIONS (4)
  - Dyspnoea [None]
  - Injection site urticaria [None]
  - Injection site pruritus [None]
  - Lip swelling [None]

NARRATIVE: CASE EVENT DATE: 20140822
